FAERS Safety Report 14716974 (Version 1)
Quarter: 2018Q2

REPORT INFORMATION
  Report Type: Spontaneous
  Country: US (occurrence: US)
  Receive Date: 20180404
  Receipt Date: 20180404
  Transmission Date: 20180711
  Serious: No
  Sender: FDA-Public Use
  Company Number: US-TEIKOKU PHARMA USA-TPU2018-00046

PATIENT
  Age: 85 Year
  Sex: Male
  Weight: 85.35 kg

DRUGS (3)
  1. 15 DIFFERENT PILLS [Concomitant]
  2. LIDOCAINE PATCH [Suspect]
     Active Substance: LIDOCAINE
     Indication: TUMOUR PAIN
     Dosage: ONE PATCH APPLIED TO LOWER RIGHT HAD SIDE OF BACK AT WAIST LINE FOR ABOUT 11 OR 12 HOURS
     Dates: start: 2017
  3. OXYCODONE AND ACETAMINOPHEN [Concomitant]
     Active Substance: ACETAMINOPHEN\OXYCODONE HYDROCHLORIDE
     Indication: PAIN

REACTIONS (6)
  - Disorientation [Recovered/Resolved]
  - Vision blurred [Recovered/Resolved]
  - Gait disturbance [Unknown]
  - Confusional state [Recovered/Resolved]
  - Nervousness [Recovered/Resolved]
  - Dizziness [Recovered/Resolved]

NARRATIVE: CASE EVENT DATE: 20180119
